FAERS Safety Report 9772097 (Version 1)
Quarter: 2013Q4

REPORT INFORMATION
  Report Type: Spontaneous
  Country: BR (occurrence: BR)
  Receive Date: 20131219
  Receipt Date: 20131219
  Transmission Date: 20140711
  Serious: Yes (Other)
  Sender: FDA-Public Use
  Company Number: BR-ROXANE LABORATORIES, INC.-2013-RO-01964RO

PATIENT
  Age: 59 Year
  Sex: Female

DRUGS (3)
  1. PREDNISONE [Suspect]
     Indication: PEMPHIGUS
     Dosage: 120 MG
     Route: 048
  2. CYCLOPHOSPHAMIDE [Suspect]
     Indication: PEMPHIGUS
     Route: 042
  3. ONDANSETRON [Concomitant]
     Route: 042

REACTIONS (1)
  - Bone marrow failure [Unknown]
